FAERS Safety Report 17760651 (Version 1)
Quarter: 2020Q2

REPORT INFORMATION
  Report Type: Spontaneous
  Country: US (occurrence: US)
  Receive Date: 20200508
  Receipt Date: 20200508
  Transmission Date: 20200714
  Serious: No
  Sender: FDA-Public Use
  Company Number: None

PATIENT
  Age: 59 Year
  Sex: Male
  Weight: 103.95 kg

DRUGS (22)
  1. OMEPRAZOLE. [Concomitant]
     Active Substance: OMEPRAZOLE
  2. ONDANSETRON [Concomitant]
     Active Substance: ONDANSETRON
  3. BACTROBAN NASAL [Concomitant]
  4. SUTENT [Suspect]
     Active Substance: SUNITINIB MALATE
     Indication: RENAL CANCER
     Route: 048
     Dates: start: 20200415, end: 20200508
  5. TUMERIC [Concomitant]
     Active Substance: HERBALS\TURMERIC
  6. ROUSUVASTATIN [Concomitant]
  7. HUMALOG [Concomitant]
     Active Substance: INSULIN LISPRO
  8. POTASSIUM CHLORIDE. [Concomitant]
     Active Substance: POTASSIUM CHLORIDE
  9. LANTUS [Concomitant]
     Active Substance: INSULIN GLARGINE
  10. CHLORTHALIDONE. [Concomitant]
     Active Substance: CHLORTHALIDONE
  11. VERAPAMIL [Concomitant]
     Active Substance: VERAPAMIL HYDROCHLORIDE
  12. CIALIS [Concomitant]
     Active Substance: TADALAFIL
  13. LOSARTAN. [Concomitant]
     Active Substance: LOSARTAN
  14. LEVOTHYROXINE. [Concomitant]
     Active Substance: LEVOTHYROXINE
  15. CILOSTAZOL. [Concomitant]
     Active Substance: CILOSTAZOL
  16. GLIPIZIDE. [Concomitant]
     Active Substance: GLIPIZIDE
  17. PROCHLORPERAZINE. [Concomitant]
     Active Substance: PROCHLORPERAZINE
  18. METOPROLOL TARTRATE. [Concomitant]
     Active Substance: METOPROLOL TARTRATE
  19. METFORMIN [Concomitant]
     Active Substance: METFORMIN HYDROCHLORIDE
  20. TIZANIDINE. [Concomitant]
     Active Substance: TIZANIDINE
  21. SUCRALFATE. [Concomitant]
     Active Substance: SUCRALFATE
  22. VOTRIENT [Concomitant]
     Active Substance: PAZOPANIB HYDROCHLORIDE

REACTIONS (3)
  - Asthenia [None]
  - Blood glucose decreased [None]
  - Rash [None]

NARRATIVE: CASE EVENT DATE: 20200508
